FAERS Safety Report 5323989-5 (Version None)
Quarter: 2007Q2

REPORT INFORMATION
  Report Type: 
  Country: None (occurrence: None)
  Receive Date: 20070221
  Receipt Date: 20061017
  Transmission Date: 20071010
  Serious: Yes (Hospitalization, Other)
  Sender: FDA-Public Use
  Company Number: PHEH2006US05560

PATIENT
  Age: 66 Year
  Sex: Female
  Weight: 107 kg

DRUGS (4)
  1. DIOVAN [Suspect]
     Indication: HYPERTENSION
     Dosage: ORAL
     Route: 048
     Dates: start: 20010101, end: 20060101
  2. PRAVACHOL [Concomitant]
  3. DIAZEPAM [Concomitant]
  4. SYNTHROID [Concomitant]

REACTIONS (7)
  - ANGIOEDEMA [None]
  - ARTHROPOD BITE [None]
  - FLUSHING [None]
  - PRURITUS [None]
  - SWELLING FACE [None]
  - SWOLLEN TONGUE [None]
  - URTICARIA [None]
